FAERS Safety Report 16192130 (Version 3)
Quarter: 2019Q2

REPORT INFORMATION
  Report Type: Spontaneous
  Country: ES (occurrence: ES)
  Receive Date: 20190412
  Receipt Date: 20190620
  Transmission Date: 20190711
  Serious: Yes (Other)
  Sender: FDA-Public Use
  Company Number: ES-PFIZER INC-2019152502

PATIENT
  Age: 79 Year
  Sex: Male

DRUGS (7)
  1. METHYLPREDNISOLONE SODIUM SUCCINATE. [Suspect]
     Active Substance: METHYLPREDNISOLONE SODIUM SUCCINATE
     Indication: CHRONIC OBSTRUCTIVE PULMONARY DISEASE
     Dosage: 8 MG, 1X/DAY (EVERY 24 HOURS)
     Dates: start: 20190112, end: 20190309
  2. ENOXAPARIN [ENOXAPARIN SODIUM] [Interacting]
     Active Substance: ENOXAPARIN SODIUM
     Indication: ATRIAL FIBRILLATION
     Dosage: 80 MG, 2X/DAY (EVERY 12 HOURS)
     Route: 058
     Dates: start: 20181112, end: 20190215
  3. SALBULAIR [Concomitant]
     Active Substance: ALBUTEROL SULFATE
     Indication: CHRONIC OBSTRUCTIVE PULMONARY DISEASE
     Dosage: 500 UG, 3X/DAY (EVERY 8 HOURS)
     Route: 065
     Dates: start: 20181115, end: 20190215
  4. SALBULAIR [Concomitant]
     Active Substance: ALBUTEROL SULFATE
     Dosage: 1125 UG, 3X/DAY
     Dates: start: 20181115, end: 20190215
  5. TAMSULOSIN [Concomitant]
     Active Substance: TAMSULOSIN
     Indication: BENIGN PROSTATIC HYPERPLASIA
     Dosage: 0.4 MG, 1X/DAY (EVERY 24 HOURS)
     Route: 065
     Dates: start: 20181122, end: 20190309
  6. ATROVENT [Concomitant]
     Active Substance: IPRATROPIUM BROMIDE
     Indication: CHRONIC OBSTRUCTIVE PULMONARY DISEASE
     Dosage: 500 UG, 3X/DAY (EVERY 8 HOURS)
     Route: 065
     Dates: start: 20181115, end: 20190215
  7. ATARAX [Concomitant]
     Active Substance: HYDROXYZINE HYDROCHLORIDE
     Indication: PRURITUS
     Dosage: 25 MG, 3X/DAY (EVERY 8 HOURS)
     Route: 065
     Dates: start: 20181219, end: 20190218

REACTIONS (4)
  - Drug interaction [Recovering/Resolving]
  - Subcutaneous haematoma [Recovered/Resolved]
  - Intentional product use issue [Recovered/Resolved]
  - Anaemia [Not Recovered/Not Resolved]

NARRATIVE: CASE EVENT DATE: 20190214
